FAERS Safety Report 10606799 (Version 1)
Quarter: 2014Q4

REPORT INFORMATION
  Report Type: Spontaneous
  Country: CN (occurrence: CN)
  Receive Date: 20141125
  Receipt Date: 20141125
  Transmission Date: 20150529
  Serious: Yes (Hospitalization)
  Sender: FDA-Public Use
  Company Number: CN-ASTRAZENECA-2014SE85259

PATIENT
  Age: 74 Year
  Sex: Female

DRUGS (2)
  1. FASLODEX [Suspect]
     Active Substance: FULVESTRANT
     Indication: BREAST CANCER
     Route: 030
     Dates: start: 20141008
  2. FASLODEX [Suspect]
     Active Substance: FULVESTRANT
     Indication: METASTASES TO LUNG
     Route: 030
     Dates: start: 20141008

REACTIONS (7)
  - Muscular weakness [Unknown]
  - Drooling [Unknown]
  - VIIth nerve paralysis [Unknown]
  - Tremor [Unknown]
  - Injection site nodule [Recovering/Resolving]
  - Pain in extremity [Unknown]
  - Hypoaesthesia [Unknown]
